FAERS Safety Report 4517798-4 (Version None)
Quarter: 2004Q4

REPORT INFORMATION
  Report Type: 
  Country: None (occurrence: None)
  Receive Date: 20041201
  Receipt Date: 20041201
  Transmission Date: 20050328
  Serious: Yes (Death, Hospitalization)
  Sender: FDA-Public Use
  Company Number: None

PATIENT
  Age: 50 Year
  Sex: Male
  Weight: 60 kg

DRUGS (3)
  1. TOSITUMOMAB [Suspect]
     Indication: B-CELL SMALL LYMPHOCYTIC LYMPHOMA
     Dosage: 450 MG IV OVER 60^
     Route: 042
     Dates: start: 20040910
  2. TOSITUMOMAB [Suspect]
     Indication: CHRONIC LYMPHOCYTIC LEUKAEMIA
     Dosage: 450 MG IV OVER 60^
     Route: 042
     Dates: start: 20040910
  3. BEXXAR [Concomitant]

REACTIONS (4)
  - PANCYTOPENIA [None]
  - RENAL FAILURE ACUTE [None]
  - URINARY BLADDER HAEMORRHAGE [None]
  - URINARY TRACT OBSTRUCTION [None]
